FAERS Safety Report 23107946 (Version 1)
Quarter: 2023Q4

REPORT INFORMATION
  Report Type: Spontaneous
  Country: CN (occurrence: CN)
  Receive Date: 20231026
  Receipt Date: 20231026
  Transmission Date: 20240110
  Serious: Yes (Other)
  Sender: FDA-Public Use
  Company Number: CN-SANDOZ-SDZ2023CN041914

PATIENT
  Age: 77 Year
  Sex: Male
  Weight: 60 kg

DRUGS (2)
  1. VORICONAZOLE [Suspect]
     Active Substance: VORICONAZOLE
     Indication: Pneumonia fungal
     Dosage: 400 MG, BID
     Route: 048
     Dates: start: 20230826, end: 20230827
  2. VORICONAZOLE [Suspect]
     Active Substance: VORICONAZOLE
     Dosage: 200 MG, Q12H
     Route: 048

REACTIONS (5)
  - Loss of consciousness [Recovered/Resolved]
  - Rapid eye movements sleep abnormal [Recovered/Resolved]
  - Faeces hard [Recovered/Resolved]
  - Transaminases increased [Recovered/Resolved]
  - Pyrexia [Recovered/Resolved]

NARRATIVE: CASE EVENT DATE: 20230828
